FAERS Safety Report 15736826 (Version 1)
Quarter: 2018Q4

REPORT INFORMATION
  Report Type: Spontaneous
  Country: US (occurrence: US)
  Receive Date: 20181204
  Receipt Date: 20181204
  Transmission Date: 20190205
  Serious: Yes (Disabling)
  Sender: FDA-Public Use
  Company Number: None

PATIENT
  Age: 71 Year
  Sex: Female
  Weight: 53.1 kg

DRUGS (6)
  1. SPIRIVA [Concomitant]
     Active Substance: TIOTROPIUM BROMIDE MONOHYDRATE
  2. ADVAIR HFA [Concomitant]
     Active Substance: FLUTICASONE PROPIONATE\SALMETEROL XINAFOATE
  3. FLONASE [Concomitant]
     Active Substance: FLUTICASONE PROPIONATE
  4. PROAIR HFA [Concomitant]
     Active Substance: ALBUTEROL SULFATE
  5. XOLAIR [Suspect]
     Active Substance: OMALIZUMAB
     Indication: BRONCHOPULMONARY ASPERGILLOSIS
     Dosage: ?          QUANTITY:2 INJECTION(S);OTHER FREQUENCY:EVERY 3 WEEKS;OTHER ROUTE:SUBTANEOUS INJECTION?
     Dates: start: 20170702, end: 20180927
  6. CALCIUM PLUS VITAMIN D3 [Concomitant]

REACTIONS (4)
  - Drug ineffective [None]
  - Anosmia [None]
  - Ageusia [None]
  - Depression [None]

NARRATIVE: CASE EVENT DATE: 20180901
